FAERS Safety Report 7365624-0 (Version None)
Quarter: 2011Q1

REPORT INFORMATION
  Report Type: 
  Country: None (occurrence: None)
  Receive Date: 20110316
  Receipt Date: 20110316
  Transmission Date: 20110831
  Serious: Yes (Other)
  Sender: FDA-Public Use
  Company Number: None

PATIENT
  Sex: Female
  Weight: 95.2554 kg

DRUGS (1)
  1. NIASPAN [Suspect]
     Indication: BLOOD CHOLESTEROL
     Dosage: 500 MG 1 DAILY ORAL
     Route: 048
     Dates: start: 20060812

REACTIONS (5)
  - HOT FLUSH [None]
  - PRURITUS [None]
  - FACIAL PARESIS [None]
  - ERYTHEMA [None]
  - PARAESTHESIA [None]
